FAERS Safety Report 5767254-0 (Version None)
Quarter: 2008Q2

REPORT INFORMATION
  Report Type: 
  Country: None (occurrence: None)
  Receive Date: 20080611
  Receipt Date: 20080611
  Transmission Date: 20081010
  Serious: No
  Sender: FDA-Public Use
  Company Number: None

PATIENT
  Age: 66 Year
  Sex: Female
  Weight: 56.6996 kg

DRUGS (1)
  1. SINGULAIR [Suspect]
     Indication: MULTIPLE ALLERGIES
     Dosage: ONE TABLET ONE TIME DAILY PO
     Route: 048
     Dates: start: 19940110, end: 20030320

REACTIONS (4)
  - COUGH [None]
  - DEAFNESS [None]
  - VASCULITIS [None]
  - WEIGHT DECREASED [None]
